FAERS Safety Report 6585719-9 (Version None)
Quarter: 2010Q1

REPORT INFORMATION
  Report Type: 
  Country: None (occurrence: None)
  Receive Date: 20100217
  Receipt Date: 20100205
  Transmission Date: 20100710
  Serious: Yes (Life-Threatening, Hospitalization)
  Sender: FDA-Public Use
  Company Number: GB-PFIZER INC-2010016797

PATIENT
  Age: 59 Year
  Sex: Male
  Weight: 80 kg

DRUGS (3)
  1. TENORETIC 100 [Suspect]
     Indication: HYPERTENSION
     Dosage: 100/25 MG, 1X/DAY
     Route: 048
  2. VERAPAMIL HCL [Suspect]
     Dosage: 2.4 G, UNK
     Route: 048
  3. ALCOHOL [Concomitant]
     Dosage: 9 UNIT, UNK
     Route: 065

REACTIONS (7)
  - CARDIAC ARREST [None]
  - DRUG TOXICITY [None]
  - HYPERGLYCAEMIA [None]
  - HYPOKALAEMIA [None]
  - METABOLIC ACIDOSIS [None]
  - OLIGURIA [None]
  - OVERDOSE [None]
